FAERS Safety Report 13184830 (Version 1)
Quarter: 2017Q1

REPORT INFORMATION
  Report Type: Spontaneous
  Country: US (occurrence: US)
  Receive Date: 20170203
  Receipt Date: 20170203
  Transmission Date: 20170428
  Serious: No
  Sender: FDA-Public Use
  Company Number: US-009507513-1701USA009239

PATIENT
  Age: 29 Year
  Sex: Female
  Weight: 107.94 kg

DRUGS (2)
  1. NUVARING [Suspect]
     Active Substance: ETHINYL ESTRADIOL\ETONOGESTREL
     Indication: CONTRACEPTION
     Dosage: UNK; 3 WEEKS IN AND 1 WEEK OUT
     Route: 067
     Dates: start: 20170101
  2. METFORMIN [Concomitant]
     Active Substance: METFORMIN HYDROCHLORIDE
     Dosage: UNK

REACTIONS (1)
  - Vulvovaginal discomfort [Unknown]

NARRATIVE: CASE EVENT DATE: 20170105
